FAERS Safety Report 7978787-0 (Version None)
Quarter: 2011Q4

REPORT INFORMATION
  Report Type: 
  Country: None (occurrence: None)
  Receive Date: 20111214
  Receipt Date: 20111207
  Transmission Date: 20120403
  Serious: Yes (Other)
  Sender: FDA-Public Use
  Company Number: CA-BRISTOL-MYERS SQUIBB COMPANY-16036915

PATIENT
  Age: 56 Year
  Sex: Male
  Weight: 86 kg

DRUGS (9)
  1. ACETAMINOPHEN [Concomitant]
     Indication: PROPHYLAXIS
     Dates: start: 20110519, end: 20110609
  2. DIPHENHYDRAMINE HCL [Concomitant]
     Indication: PROPHYLAXIS
     Dates: start: 20110519
  3. RITUXIMAB [Suspect]
     Indication: NON-HODGKIN'S LYMPHOMA
     Dosage: RESTAT ON 07JUL2011
     Route: 042
     Dates: start: 20110519
  4. ZOFRAN [Concomitant]
     Indication: ANTIEMETIC SUPPORTIVE CARE
     Dates: start: 20110519
  5. CYCLOPHOSPHAMIDE [Suspect]
     Indication: NON-HODGKIN'S LYMPHOMA
     Dosage: DOSE REDUCED TO 550MG/M2
     Route: 042
     Dates: start: 20110519
  6. PREDNISONE [Suspect]
     Indication: NON-HODGKIN'S LYMPHOMA
     Dosage: RESTAT ON 07JUL11
     Route: 048
     Dates: start: 20110519
  7. VINCRISTINE SULFATE [Suspect]
     Indication: NON-HODGKIN'S LYMPHOMA
     Dosage: RESTAT ON 07JUL2011
     Route: 042
     Dates: start: 20110519
  8. COLESTID [Concomitant]
     Indication: DIARRHOEA
     Dates: start: 19910101
  9. ATIVAN [Concomitant]
     Indication: ANXIETY
     Dates: start: 20110611

REACTIONS (1)
  - HY'S LAW CASE [None]
